FAERS Safety Report 4682373-8 (Version None)
Quarter: 2005Q2

REPORT INFORMATION
  Report Type: 
  Country: None (occurrence: None)
  Receive Date: 20050606
  Receipt Date: 20050526
  Transmission Date: 20051028
  Serious: Yes (Other)
  Sender: FDA-Public Use
  Company Number: PHBS2005IT07674

PATIENT
  Age: 74 Year
  Sex: Male

DRUGS (3)
  1. MELPHALAN [Concomitant]
     Dates: start: 20040901
  2. PREDNISONE [Concomitant]
     Dates: start: 20040901
  3. ZOMETA [Suspect]
     Indication: MULTIPLE MYELOMA
     Dosage: 4 MG, QMO
     Route: 042
     Dates: start: 20030101, end: 20050228

REACTIONS (3)
  - ASEPTIC NECROSIS BONE [None]
  - TOOTH EXTRACTION [None]
  - TOOTHACHE [None]
